FAERS Safety Report 6651218-9 (Version None)
Quarter: 2010Q1

REPORT INFORMATION
  Report Type: 
  Country: None (occurrence: None)
  Receive Date: 20100325
  Receipt Date: 20100313
  Transmission Date: 20100710
  Serious: Yes (Hospitalization)
  Sender: FDA-Public Use
  Company Number: IT-JNJFOC-20090602316

PATIENT
  Sex: Female

DRUGS (6)
  1. LEVOFLOXACIN [Suspect]
     Indication: BACTERIAL INFECTION
     Route: 048
  2. GLIBOMET [Concomitant]
     Route: 065
  3. ENAPREN [Concomitant]
     Route: 065
  4. LANSOX [Concomitant]
     Route: 065
  5. TRAMADOL HCL [Concomitant]
     Route: 065
  6. NADROPARIN CALCIUM [Concomitant]
     Route: 065

REACTIONS (1)
  - HYPOGLYCAEMIC COMA [None]
